FAERS Safety Report 11932779 (Version 7)
Quarter: 2018Q1

REPORT INFORMATION
  Report Type: Report from Study
  Country: US (occurrence: US)
  Receive Date: 20160120
  Receipt Date: 20180228
  Transmission Date: 20180508
  Serious: Yes (Hospitalization, Other)
  Sender: FDA-Public Use
  Company Number: US-ACTELION-A-NJ2016-130041

PATIENT
  Age: 92 Year
  Sex: Female

DRUGS (12)
  1. TORSEMIDE. [Concomitant]
     Active Substance: TORSEMIDE
  2. GINGER. [Concomitant]
     Active Substance: GINGER
  3. OPSUMIT [Suspect]
     Active Substance: MACITENTAN
     Dosage: 10 MG, UNK
     Route: 048
     Dates: end: 20171101
  4. GABAPENTIN. [Concomitant]
     Active Substance: GABAPENTIN
  5. CITRACAL + D [Concomitant]
     Active Substance: CALCIUM CITRATE\VITAMIN D
  6. DIGOXIN. [Concomitant]
     Active Substance: DIGOXIN
  7. SANDOSTATIN [Concomitant]
     Active Substance: OCTREOTIDE ACETATE
  8. TRACLEER [Suspect]
     Active Substance: BOSENTAN
     Indication: PULMONARY ARTERIAL HYPERTENSION
     Dosage: 62.5 MG, BID
     Route: 048
     Dates: start: 20171108
  9. WARFARIN [Concomitant]
     Active Substance: WARFARIN
  10. OPSUMIT [Suspect]
     Active Substance: MACITENTAN
     Indication: PULMONARY ARTERIAL HYPERTENSION
     Dosage: 10 MG, QD
     Route: 048
     Dates: start: 20140130, end: 20170810
  11. TYVASO [Concomitant]
     Active Substance: TREPROSTINIL
  12. VITAMIN B12 [Concomitant]
     Active Substance: CYANOCOBALAMIN

REACTIONS (12)
  - Fall [Unknown]
  - Vomiting [Unknown]
  - White blood cell count increased [Unknown]
  - Hip fracture [Unknown]
  - Haematocrit decreased [Unknown]
  - Carcinoid tumour of the stomach [Unknown]
  - Red blood cell count decreased [Unknown]
  - Osteoporosis [Unknown]
  - Anaemia [Not Recovered/Not Resolved]
  - Transfusion [Unknown]
  - Haemoglobin decreased [Recovering/Resolving]
  - Nausea [Unknown]

NARRATIVE: CASE EVENT DATE: 20160103
